FAERS Safety Report 7675254-9 (Version None)
Quarter: 2011Q3

REPORT INFORMATION
  Report Type: 
  Country: None (occurrence: None)
  Receive Date: 20110810
  Receipt Date: 20110801
  Transmission Date: 20111222
  Serious: Yes (Other)
  Sender: FDA-Public Use
  Company Number: US-ENDO PHARMACEUTICALS INC.-PRHC20110008

PATIENT
  Sex: Female

DRUGS (3)
  1. PROPOXYPHENE HYDROCHLORIDE [Suspect]
     Indication: ARTHRALGIA
     Dosage: 65 MG
     Route: 048
     Dates: end: 20101101
  2. DARVOCET [Suspect]
     Indication: ARTHRALGIA
     Dosage: UNK
     Route: 048
  3. DARVON COMPOUND-65 [Suspect]
     Indication: ARTHRALGIA
     Dosage: 65 MG

REACTIONS (2)
  - CEREBROVASCULAR ACCIDENT [None]
  - MYOCARDIAL INFARCTION [None]
